FAERS Safety Report 6438223-2 (Version None)
Quarter: 2009Q4

REPORT INFORMATION
  Report Type: 
  Country: None (occurrence: None)
  Receive Date: 20091109
  Receipt Date: 20091022
  Transmission Date: 20100525
  Serious: Yes (Other)
  Sender: FDA-Public Use
  Company Number: 09-001710

PATIENT
  Age: 76 Year
  Sex: Male

DRUGS (3)
  1. DOVONEX [Suspect]
     Dosage: TOPICAL
     Route: 061
  2. TACLONEX [Suspect]
     Dosage: TOPICAL
     Route: 061
  3. DOVONEX [Suspect]
     Dosage: TOPICAL
     Route: 061

REACTIONS (1)
  - NEPHROLITHIASIS [None]
